FAERS Safety Report 5683246-4 (Version None)
Quarter: 2008Q1

REPORT INFORMATION
  Report Type: 
  Country: None (occurrence: None)
  Receive Date: 20080326
  Receipt Date: 20080317
  Transmission Date: 20080703
  Serious: No
  Sender: FDA-Public Use
  Company Number: 2008S1003427

PATIENT
  Age: 29 Year
  Sex: Male

DRUGS (6)
  1. CLONAZEPAM [Suspect]
     Indication: ANXIETY
     Dosage: 1 MG; 3 TIMES A DAY; ORAL, 23 MG; X1; ORAL
     Route: 048
     Dates: start: 20030714
  2. GABAPENTIN [Concomitant]
  3. CYMBALTA [Concomitant]
  4. QUETIAPINE FUMARATE [Concomitant]
  5. PROPRANOLOL [Concomitant]
  6. DEPAKOTE [Concomitant]

REACTIONS (3)
  - CONFUSIONAL STATE [None]
  - DRUG SCREEN POSITIVE [None]
  - INTENTIONAL DRUG MISUSE [None]
